FAERS Safety Report 8947027 (Version 1)
Quarter: 2012Q4

REPORT INFORMATION
  Report Type: 
  Country: CA (occurrence: CA)
  Receive Date: 20121205
  Receipt Date: 20121205
  Transmission Date: 20130627
  Serious: Yes (Hospitalization, Other)
  Sender: FDA-Public Use
  Company Number: CA-AMGEN-CANSP2012077442

PATIENT
  Age: 70 Year
  Sex: Female
  Weight: 41.82 kg

DRUGS (1)
  1. PROLIA [Suspect]
     Indication: OSTEOPOROSIS
     Dosage: UNK
     Dates: start: 20111102, end: 20120502

REACTIONS (2)
  - Haemorrhage intracranial [Unknown]
  - Cerebrovascular accident [Unknown]
